FAERS Safety Report 20518317 (Version 2)
Quarter: 2022Q1

REPORT INFORMATION
  Report Type: Spontaneous
  Country: JP (occurrence: JP)
  Receive Date: 20220225
  Receipt Date: 20220322
  Transmission Date: 20220423
  Serious: Yes (Hospitalization)
  Sender: FDA-Public Use
  Company Number: JP-JNJFOC-20220240974

PATIENT
  Age: 8 Decade
  Sex: Male

DRUGS (2)
  1. OPSUMIT [Suspect]
     Active Substance: MACITENTAN
     Indication: Pulmonary hypertension
     Route: 048
     Dates: start: 20220128, end: 20220215
  2. URSO [Concomitant]
     Active Substance: URSODIOL
     Dosage: DOSE UNKNOWN
     Route: 048
     Dates: start: 202202

REACTIONS (3)
  - Hospitalisation [Unknown]
  - Fulminant type 1 diabetes mellitus [Recovering/Resolving]
  - Catheter placement [Unknown]

NARRATIVE: CASE EVENT DATE: 20220207
